FAERS Safety Report 6439774-7 (Version None)
Quarter: 2009Q4

REPORT INFORMATION
  Report Type: 
  Country: None (occurrence: None)
  Receive Date: 20091113
  Receipt Date: 20091105
  Transmission Date: 20100525
  Serious: Yes (Other)
  Sender: FDA-Public Use
  Company Number: CHPA2009US21627

PATIENT
  Age: 65 Year
  Sex: Male

DRUGS (10)
  1. GAS-X EXTSTR CHEW TABS PEPPERMINT CREME (NCH) [Suspect]
     Indication: ABDOMINAL DISTENSION
     Dosage: 250 MG, TID
     Route: 048
     Dates: start: 20091104, end: 20091105
  2. GAS-X EXTSTR CHEW TABS PEPPERMINT CREME (NCH) [Suspect]
     Indication: FLATULENCE
  3. ASPIRIN [Concomitant]
  4. LISINOPRIL [Concomitant]
  5. METOPROLOL TARTRATE [Concomitant]
  6. HUMULIN 70/30 [Concomitant]
     Indication: DIABETES MELLITUS
     Route: 058
  7. HUMULIN R [Concomitant]
     Indication: DIABETES MELLITUS
     Dosage: QD, SLIDING SCALE
     Route: 058
  8. FUROSEMIDE [Concomitant]
     Dosage: 40 MG, QD
     Route: 048
  9. DRUG THERAPY NOS [Concomitant]
     Indication: INSOMNIA
  10. SEROQUEL [Concomitant]
     Indication: STRESS
     Dosage: 25 MG, UNK

REACTIONS (11)
  - ASTHENIA [None]
  - BLADDER CATHETERISATION [None]
  - DIZZINESS [None]
  - DRUG INEFFECTIVE [None]
  - HYPERHIDROSIS [None]
  - INSOMNIA [None]
  - MICTURITION URGENCY [None]
  - NAUSEA [None]
  - OVERDOSE [None]
  - RECTAL TENESMUS [None]
  - URINARY RETENTION [None]
